FAERS Safety Report 15709605 (Version 1)
Quarter: 2018Q4

REPORT INFORMATION
  Report Type: Spontaneous
  Country: US (occurrence: US)
  Receive Date: 20181211
  Receipt Date: 20181211
  Transmission Date: 20190205
  Serious: No
  Sender: FDA-Public Use
  Company Number: US-BAYER-2018-222564

PATIENT
  Age: 50 Year
  Weight: 53.06 kg

DRUGS (5)
  1. KADCYLA [Concomitant]
     Active Substance: ADO-TRASTUZUMAB EMTANSINE
  2. DULCOLAX (BISACODYL) [Concomitant]
     Active Substance: BISACODYL
  3. MIRALAX [Suspect]
     Active Substance: POLYETHYLENE GLYCOL 3350
     Indication: GASTROINTESTINAL DISORDER
     Dosage: 2 CAPS FULL A DAY
  4. NUCYNTA [Concomitant]
     Active Substance: TAPENTADOL HYDROCHLORIDE
  5. MILK OF MAGNESIA ORIGINAL [Suspect]
     Active Substance: MAGNESIUM HYDROXIDE
     Indication: GASTROINTESTINAL DISORDER
     Dosage: 60 ML, QD
     Route: 048

REACTIONS (6)
  - Wrong technique in product usage process [None]
  - Product use issue [None]
  - Drug effective for unapproved indication [None]
  - Off label use [None]
  - Incorrect product administration duration [None]
  - Incorrect dosage administered [None]
